FAERS Safety Report 21155130 (Version 1)
Quarter: 2022Q3

REPORT INFORMATION
  Report Type: Spontaneous
  Country: US (occurrence: None)
  Receive Date: 20220731
  Receipt Date: 20220731
  Transmission Date: 20221026
  Serious: No
  Sender: FDA-Public Use
  Company Number: None

PATIENT
  Age: 95 Year
  Sex: Male
  Weight: 94.8 kg

DRUGS (13)
  1. PAXLOVID [Suspect]
     Active Substance: NIRMATRELVIR\RITONAVIR
     Indication: COVID-19
     Dosage: FREQUENCY : TWICE A DAY;?
     Route: 048
     Dates: start: 20220623, end: 20220627
  2. acetaminophen (pain reliever acetaminophen) 325 mg tablet [Concomitant]
  3. aspirin 325 mg enteric coated tablet [Concomitant]
  4. atorvastatin (LIPITOR) 40 mg tablet [Concomitant]
     Dates: end: 20220623
  5. ferrous gluconate 324 mg (38 mg iron) tablet [Concomitant]
  6. finasteride (PROSCAR) 5 mg tablet [Concomitant]
  7. GABAPENTIN [Concomitant]
     Active Substance: GABAPENTIN
  8. levothyroxine (EUTHYROX) 50 mcg tablet [Concomitant]
  9. melatonin 10 mg capsule [Concomitant]
  10. metformin 500 mg tablet [Concomitant]
  11. METOPROLOL TARTRATE [Concomitant]
     Active Substance: METOPROLOL TARTRATE
  12. METOPROLOL TARTRATE [Concomitant]
     Active Substance: METOPROLOL TARTRATE
  13. TAMSULOSIN HYDROCHLORIDE [Concomitant]
     Active Substance: TAMSULOSIN HYDROCHLORIDE
     Dates: end: 20220623

REACTIONS (2)
  - SARS-CoV-2 test positive [None]
  - Rebound effect [None]

NARRATIVE: CASE EVENT DATE: 20220708
